FAERS Safety Report 19753739 (Version 1)
Quarter: 2021Q3

REPORT INFORMATION
  Report Type: Spontaneous
  Country: US (occurrence: US)
  Receive Date: 20210826
  Receipt Date: 20210826
  Transmission Date: 20211014
  Serious: Yes (Other)
  Sender: FDA-Public Use
  Company Number: None

PATIENT
  Age: 33 Year
  Sex: Female
  Weight: 96.75 kg

DRUGS (2)
  1. LEVOTHYROXINE. [Suspect]
     Active Substance: LEVOTHYROXINE
     Indication: HYPOTHYROIDISM
     Dosage: ?          QUANTITY:1 TABLET(S);?
     Route: 048
     Dates: start: 20210318, end: 20210318
  2. METOPROLOL TARTRATE. [Concomitant]
     Active Substance: METOPROLOL TARTRATE

REACTIONS (16)
  - Deafness [None]
  - Asthenia [None]
  - Mydriasis [None]
  - Chest pain [None]
  - Muscle twitching [None]
  - Gait disturbance [None]
  - Tinnitus [None]
  - Blood pressure increased [None]
  - Dyspnoea [None]
  - Muscle spasms [None]
  - Deafness unilateral [None]
  - Tachycardia [None]
  - Insomnia [None]
  - Vision blurred [None]
  - Dizziness [None]
  - Ocular discomfort [None]

NARRATIVE: CASE EVENT DATE: 20210318
